FAERS Safety Report 6413810-6 (Version None)
Quarter: 2009Q4

REPORT INFORMATION
  Report Type: 
  Country: None (occurrence: None)
  Receive Date: 20091026
  Receipt Date: 20091016
  Transmission Date: 20100525
  Serious: Yes (Other)
  Sender: FDA-Public Use
  Company Number: B0598158A

PATIENT
  Age: 74 Year
  Sex: Female
  Weight: 82 kg

DRUGS (1)
  1. ALLI [Suspect]
     Dosage: 60MG PER DAY
     Route: 065
     Dates: start: 20090827, end: 20090904

REACTIONS (4)
  - ARRHYTHMIA [None]
  - DIZZINESS [None]
  - TACHYCARDIA [None]
  - VISION BLURRED [None]
